FAERS Safety Report 5317770-0 (Version None)
Quarter: 2007Q2

REPORT INFORMATION
  Report Type: 
  Country: None (occurrence: None)
  Receive Date: 20070502
  Receipt Date: 20070502
  Transmission Date: 20071010
  Serious: Yes (Other)
  Sender: FDA-Public Use
  Company Number: None

PATIENT
  Age: 57 Year
  Sex: Female
  Weight: 134.2647 kg

DRUGS (1)
  1. TRAMADOL HCL [Suspect]
     Indication: ARTHRALGIA
     Dosage: 1 OR 2 EVENING
     Dates: start: 20070421, end: 20070501

REACTIONS (1)
  - MOUTH ULCERATION [None]
